FAERS Safety Report 9167604 (Version 3)
Quarter: 2013Q4

REPORT INFORMATION
  Report Type: Spontaneous
  Country: US (occurrence: US)
  Receive Date: 20130318
  Receipt Date: 20131010
  Transmission Date: 20140711
  Serious: No
  Sender: FDA-Public Use
  Company Number: 2013SP002919

PATIENT
  Sex: Female

DRUGS (1)
  1. LATUDA [Suspect]
     Indication: BIPOLAR I DISORDER
     Route: 048

REACTIONS (3)
  - Hypersensitivity [Recovered/Resolved]
  - Nodule [Recovered/Resolved]
  - Pruritus [Recovered/Resolved]
